FAERS Safety Report 5618585-6 (Version None)
Quarter: 2008Q1

REPORT INFORMATION
  Report Type: 
  Country: None (occurrence: None)
  Receive Date: 20080205
  Receipt Date: 20080123
  Transmission Date: 20080703
  Serious: Yes (Hospitalization, Other)
  Sender: FDA-Public Use
  Company Number: 230865J08USA

PATIENT
  Age: 65 Year
  Sex: Female
  Weight: 93.8946 kg

DRUGS (5)
  1. REBIF [Suspect]
     Indication: MULTIPLE SCLEROSIS
     Dosage: 44 MCG, 3 IN 1 WEEKS, SUBCUTANEOUS
     Route: 058
     Dates: start: 20071008
  2. ACETYLSALICYLIC ACID SRT [Concomitant]
  3. LOVASTATIN [Concomitant]
  4. ALTACE [Concomitant]
  5. METFORMIN HCL [Concomitant]

REACTIONS (4)
  - AORTIC DISORDER [None]
  - BLOOD PRESSURE FLUCTUATION [None]
  - CORONARY ARTERY OCCLUSION [None]
  - MYOCARDIAL CALCIFICATION [None]
